FAERS Safety Report 20463177 (Version 1)
Quarter: 2022Q1

REPORT INFORMATION
  Report Type: Spontaneous
  Country: US (occurrence: None)
  Receive Date: 20220203
  Receipt Date: 20220203
  Transmission Date: 20220423
  Serious: Yes (Other)
  Sender: FDA-Public Use
  Company Number: None

PATIENT
  Age: 3 Month
  Sex: Female

DRUGS (1)
  1. SODIUM CHLORIDE [Suspect]
     Active Substance: SODIUM CHLORIDE
     Indication: Rhinorrhoea
     Route: 045

REACTIONS (5)
  - Choking [None]
  - Corneal reflex decreased [None]
  - Respiratory arrest [None]
  - Device delivery system issue [None]
  - Salivary hypersecretion [None]
